FAERS Safety Report 6841888-4 (Version None)
Quarter: 2010Q3

REPORT INFORMATION
  Report Type: 
  Country: None (occurrence: None)
  Receive Date: 20100714
  Receipt Date: 20070717
  Transmission Date: 20110219
  Serious: No
  Sender: FDA-Public Use
  Company Number: US-PFIZER INC-2007059481

PATIENT
  Sex: Male
  Weight: 122.5 kg

DRUGS (11)
  1. CHANTIX [Suspect]
     Indication: SMOKING CESSATION THERAPY
     Dates: end: 20070101
  2. ALL OTHER THERAPEUTIC PRODUCTS [Suspect]
  3. ACETYLSALICYLIC ACID [Concomitant]
  4. DIFLUNISAL [Concomitant]
     Indication: ARTHRITIS
  5. MULTI-VITAMINS [Concomitant]
  6. LIPITOR [Concomitant]
  7. OMEPRAZOLE [Concomitant]
  8. TOPROL-XL [Concomitant]
  9. LISINOPRIL [Concomitant]
  10. SPIRONOLACTONE [Concomitant]
  11. TRIAMTERENE [Concomitant]

REACTIONS (2)
  - ABSTAINS FROM ALCOHOL [None]
  - SOMNOLENCE [None]
